FAERS Safety Report 4929694-9 (Version None)
Quarter: 2006Q1

REPORT INFORMATION
  Report Type: 
  Country: None (occurrence: None)
  Receive Date: 20060301
  Receipt Date: 20051028
  Transmission Date: 20060701
  Serious: Yes (Other)
  Sender: FDA-Public Use
  Company Number: ES-MERCK-0510ESP00037

PATIENT
  Age: 77 Year
  Sex: Male

DRUGS (10)
  1. ZETIA [Suspect]
     Indication: HYPERCHOLESTEROLAEMIA
     Route: 048
     Dates: start: 20050901, end: 20051018
  2. ALLOPURINOL [Concomitant]
     Indication: HYPERURICAEMIA
     Route: 065
     Dates: start: 20050901, end: 20051018
  3. FUROSEMIDE [Concomitant]
     Route: 065
  4. SPIRONOLACTONE [Concomitant]
     Route: 065
  5. RAMIPRIL [Concomitant]
     Route: 065
  6. DIGOXIN [Concomitant]
     Route: 065
  7. CARVEDILOL [Concomitant]
     Route: 065
  8. WARFARIN [Concomitant]
     Route: 065
  9. CIPROFLOXACIN [Concomitant]
     Indication: CHOLECYSTITIS
     Route: 048
  10. GLYBURIDE [Concomitant]
     Route: 065

REACTIONS (1)
  - HEPATITIS TOXIC [None]
